FAERS Safety Report 9781141 (Version 2)
Quarter: 2013Q4

REPORT INFORMATION
  Report Type: Spontaneous
  Country: US (occurrence: US)
  Receive Date: 20131224
  Receipt Date: 20131224
  Transmission Date: 20140711
  Serious: Yes (Hospitalization, Other)
  Sender: FDA-Public Use
  Company Number: US-UCBSA-097636

PATIENT
  Sex: Female
  Weight: 55.79 kg

DRUGS (2)
  1. KEPPRA XR [Suspect]
     Indication: CONVULSION
     Dosage: DOSE: 500 MG 3/DAILY
  2. KEPPRA XR [Suspect]
     Indication: CONVULSION

REACTIONS (2)
  - Petit mal epilepsy [Not Recovered/Not Resolved]
  - Inappropriate schedule of drug administration [Not Recovered/Not Resolved]
